FAERS Safety Report 5494482-4 (Version None)
Quarter: 2007Q4

REPORT INFORMATION
  Report Type: 
  Country: None (occurrence: None)
  Receive Date: 20071023
  Receipt Date: 20071023
  Transmission Date: 20080405
  Serious: Yes (Life-Threatening, Disabling, Other)
  Sender: FDA-Public Use
  Company Number: None

PATIENT
  Age: 26 Year
  Sex: Female
  Weight: 90.7194 kg

DRUGS (1)
  1. MISOPROSTOL [Suspect]
     Indication: LABOUR INDUCTION
     Dates: start: 20050325, end: 20050325

REACTIONS (1)
  - HAEMORRHAGE [None]
